FAERS Safety Report 11487145 (Version 1)
Quarter: 2015Q3

REPORT INFORMATION
  Report Type: Spontaneous
  Country: US (occurrence: US)
  Receive Date: 20150909
  Receipt Date: 20150909
  Transmission Date: 20151125
  Serious: No
  Sender: FDA-Public Use
  Company Number: US-JAZZ-2015-US-002412

PATIENT
  Age: 65 Year
  Sex: Female

DRUGS (2)
  1. XYREM [Suspect]
     Active Substance: SODIUM OXYBATE
     Indication: NARCOLEPSY
     Dosage: 2.25 G, BID
     Route: 048
     Dates: start: 20150212
  2. XYREM [Suspect]
     Active Substance: SODIUM OXYBATE
     Indication: CATAPLEXY

REACTIONS (5)
  - Mental impairment [Unknown]
  - Musculoskeletal disorder [Unknown]
  - Nausea [Unknown]
  - Dyskinesia [Unknown]
  - Dizziness [Unknown]

NARRATIVE: CASE EVENT DATE: 20150212
